FAERS Safety Report 4667567-X (Version None)
Quarter: 2005Q2

REPORT INFORMATION
  Report Type: 
  Country: None (occurrence: None)
  Receive Date: 20050520
  Receipt Date: 20050510
  Transmission Date: 20051028
  Serious: Yes (Hospitalization)
  Sender: FDA-Public Use
  Company Number: GB-BRISTOL-MYERS SQUIBB COMPANY-12961728

PATIENT
  Age: 40 Year
  Sex: Female

DRUGS (3)
  1. KENALOG [Suspect]
     Route: 014
  2. LIDOCAINE [Suspect]
     Route: 014
  3. BUPIVACAINE [Suspect]
     Route: 014

REACTIONS (1)
  - NERVE BLOCK [None]
